FAERS Safety Report 9019405 (Version 3)
Quarter: 2013Q1

REPORT INFORMATION
  Report Type: Spontaneous
  Country: SE (occurrence: SE)
  Receive Date: 20130118
  Receipt Date: 20130321
  Transmission Date: 20140127
  Serious: Yes (Other)
  Sender: FDA-Public Use
  Company Number: SE-AMGEN-SWESP2013003637

PATIENT
  Age: 70 Year
  Sex: Female
  Weight: 80 kg

DRUGS (1)
  1. ENBREL [Suspect]
     Indication: RHEUMATOID ARTHRITIS
     Dosage: 25 MG, UNK
     Route: 058
     Dates: start: 2004

REACTIONS (4)
  - Infection susceptibility increased [Unknown]
  - Needle issue [Unknown]
  - Injection site discomfort [Unknown]
  - Injection site pain [Unknown]
